FAERS Safety Report 6972776-0 (Version None)
Quarter: 2010Q3

REPORT INFORMATION
  Report Type: 
  Country: None (occurrence: None)
  Receive Date: 20100909
  Receipt Date: 20100831
  Transmission Date: 20110219
  Serious: Yes (Other)
  Sender: FDA-Public Use
  Company Number: BG-BAXTER-2010BH022671

PATIENT
  Age: 2 Year
  Sex: Male

DRUGS (3)
  1. DEXTROSE 5% [Suspect]
     Indication: FLUID REPLACEMENT
     Route: 042
     Dates: start: 20100818, end: 20100818
  2. AMOXICILLIN AND CLAVULANATE POTASSIUM [Suspect]
     Indication: BRONCHITIS
     Route: 065
     Dates: start: 20100801, end: 20100801
  3. CEFUROXIME [Concomitant]
     Indication: BRONCHITIS
     Route: 065
     Dates: start: 20100801, end: 20100801

REACTIONS (4)
  - DYSPNOEA [None]
  - EYELID OEDEMA [None]
  - FACE OEDEMA [None]
  - URTICARIA [None]
